FAERS Safety Report 4779939-3 (Version None)
Quarter: 2005Q3

REPORT INFORMATION
  Report Type: 
  Country: None (occurrence: None)
  Receive Date: 20050927
  Receipt Date: 20050920
  Transmission Date: 20060218
  Serious: Yes (Hospitalization)
  Sender: FDA-Public Use
  Company Number: JPKYO-S-S20050029

PATIENT
  Age: 34 Year
  Sex: Female

DRUGS (3)
  1. NAVELBINE [Suspect]
     Route: 042
     Dates: start: 20050908
  2. CARBOPLATIN [Suspect]
     Route: 042
  3. KYTRIL [Concomitant]
     Route: 065
     Dates: start: 20050908, end: 20050908

REACTIONS (8)
  - ANXIETY [None]
  - CALCULUS URINARY [None]
  - CHROMATURIA [None]
  - CYSTITIS HAEMORRHAGIC [None]
  - HAEMATURIA [None]
  - HAEMORRHAGE URINARY TRACT [None]
  - HYPERTONIC BLADDER [None]
  - PYREXIA [None]
